FAERS Safety Report 5564079-6 (Version None)
Quarter: 2007Q4

REPORT INFORMATION
  Report Type: 
  Country: None (occurrence: None)
  Receive Date: 20071217
  Receipt Date: 20071203
  Transmission Date: 20080405
  Serious: Yes (Life-Threatening, Hospitalization)
  Sender: FDA-Public Use
  Company Number: GB-RANBAXY-2007RR-11832

PATIENT

DRUGS (12)
  1. ATENOLOL TABLETS BP 100MG [Suspect]
     Indication: HYPERTENSION
     Dosage: 100 MG, QD
     Route: 048
     Dates: end: 20071024
  2. CO-AMILOFRUSE [Suspect]
     Indication: HYPERTENSION
     Dosage: 1 DF, QD
     Route: 048
     Dates: end: 20071024
  3. NIFEDIPIN BASICS 10 MG RETARD [Suspect]
     Dosage: 90 MG, UNK
     Route: 048
     Dates: end: 20071024
  4. AMITRIPTYLINE HCL [Concomitant]
     Indication: SLEEP DISORDER
     Dosage: 10 MG, QD
     Route: 048
     Dates: end: 20071024
  5. DISPERSIBLE ASPIRIN 75MG TABLETS BP [Concomitant]
     Indication: CARDIOVASCULAR DISORDER
     Dosage: 75 MG, QD
     Route: 048
  6. ATORVASTATIN [Concomitant]
     Indication: CARDIOVASCULAR DISORDER
     Dosage: 20 MG, QD
     Route: 048
  7. COD LIVER OIL [Concomitant]
     Indication: ARTHRITIS
     Dosage: UNK
  8. CO-PROXAMOL [Concomitant]
     Indication: ARTHRITIS
     Dosage: 2 DF, QID
     Route: 048
  9. GLYBURIDE [Concomitant]
     Indication: DIABETES MELLITUS
     Dosage: 10 MG, BID
     Route: 048
     Dates: end: 20071024
  10. IBUPROFEN TABLETS BP 400MG [Concomitant]
     Indication: ARTHRITIS
     Dosage: 400 MG, PRN
     Route: 048
  11. INSULATARD [Concomitant]
     Indication: DIABETES MELLITUS
     Dosage: 5 UNK, QD
     Route: 058
  12. METFORMIN 850MG TABLETS [Concomitant]
     Indication: DIABETES MELLITUS
     Dosage: 850 MG, TID

REACTIONS (6)
  - ATRIOVENTRICULAR BLOCK COMPLETE [None]
  - BLOOD GLUCOSE INCREASED [None]
  - BRADYCARDIA [None]
  - HYPOTENSION [None]
  - LACTIC ACIDOSIS [None]
  - MALAISE [None]
